FAERS Safety Report 9841425 (Version 1)
Quarter: 2014Q1

REPORT INFORMATION
  Report Type: Spontaneous
  Country: US (occurrence: None)
  Receive Date: 20140123
  Receipt Date: 20140123
  Transmission Date: 20141002
  Serious: No
  Sender: FDA-Public Use
  Company Number: None

PATIENT
  Age: 27 Year
  Sex: Female
  Weight: 88.45 kg

DRUGS (1)
  1. PARAGARD [Suspect]
     Indication: CONTRACEPTION
     Dates: end: 20140114

REACTIONS (6)
  - Pregnancy with contraceptive device [None]
  - Maternal exposure during pregnancy [None]
  - Device extrusion [None]
  - Device breakage [None]
  - Complication of device removal [None]
  - Device dislocation [None]
